FAERS Safety Report 15074938 (Version 1)
Quarter: 2018Q2

REPORT INFORMATION
  Report Type: Spontaneous
  Country: US (occurrence: US)
  Receive Date: 20180627
  Receipt Date: 20180627
  Transmission Date: 20180711
  Serious: Yes (Hospitalization, Other)
  Sender: FDA-Public Use
  Company Number: US-SAOL THERAPEUTICS-2017SAO01655

PATIENT
  Age: 59 Year
  Sex: Female

DRUGS (10)
  1. KETAMINE [Suspect]
     Active Substance: KETAMINE
     Dosage: 6001.3 ?G, \DAY
     Route: 037
     Dates: start: 20171019, end: 20171020
  2. COMPOUNDED BACLOFEN [Suspect]
     Active Substance: BACLOFEN
     Dosage: 3002.5 ?G, \DAY
     Route: 037
     Dates: start: 20171019, end: 20171020
  3. CLONIDINE. [Suspect]
     Active Substance: CLONIDINE
     Dosage: 5.8 ?G, \DAY
     Route: 037
     Dates: start: 20171020
  4. DILAUDID [Suspect]
     Active Substance: HYDROMORPHONE HYDROCHLORIDE
     Dosage: 16999.3 ?G, \DAY
     Route: 037
     Dates: start: 20171019, end: 20171020
  5. BUPIVACAINE. [Suspect]
     Active Substance: BUPIVACAINE
     Dosage: 166 ?G, \DAY
     Route: 037
     Dates: start: 20171020
  6. CLONIDINE. [Suspect]
     Active Substance: CLONIDINE
     Dosage: 3502.91 ?G, \DAY
     Route: 037
     Dates: start: 20171019, end: 20171020
  7. DILAUDID [Suspect]
     Active Substance: HYDROMORPHONE HYDROCHLORIDE
     Dosage: 28.3 ?G, \DAY
     Route: 037
     Dates: start: 20171020
  8. KETAMINE [Suspect]
     Active Substance: KETAMINE
     Dosage: 9.9 ?G, \DAY
     Route: 037
     Dates: start: 20171020
  9. COMPOUNDED BACLOFEN [Suspect]
     Active Substance: BACLOFEN
     Dosage: 4.97 ?G, \DAY
     Route: 037
     Dates: start: 20171020
  10. BUPIVACAINE. [Suspect]
     Active Substance: BUPIVACAINE
     Dosage: 100083 ?G, \DAY
     Route: 037
     Dates: start: 20171019, end: 20171020

REACTIONS (6)
  - Overdose [Unknown]
  - Hypoaesthesia [Unknown]
  - Unresponsive to stimuli [Unknown]
  - Off label use [Unknown]
  - Device programming error [Unknown]
  - Seizure [Unknown]

NARRATIVE: CASE EVENT DATE: 20171019
